FAERS Safety Report 7438911-5 (Version None)
Quarter: 2011Q2

REPORT INFORMATION
  Report Type: 
  Country: None (occurrence: None)
  Receive Date: 20110426
  Receipt Date: 20110420
  Transmission Date: 20111010
  Serious: Yes (Other)
  Sender: FDA-Public Use
  Company Number: US-RB-026232-11

PATIENT
  Age: 39 Year
  Sex: Male

DRUGS (3)
  1. SUBOXONE [Suspect]
     Indication: DRUG DEPENDENCE
     Dosage: SUBLINGUAL FILM
     Route: 060
     Dates: start: 20110101, end: 20110401
  2. XANAX [Suspect]
     Indication: ANXIETY
     Dosage: ^2 MG DAILY BUT IS TAKING 4 MG TWICE A DAY^
     Route: 048
     Dates: end: 20110401
  3. SEROQUEL [Concomitant]
     Indication: PRODUCT USED FOR UNKNOWN INDICATION
     Dosage: ^300 MG^

REACTIONS (3)
  - DRUG WITHDRAWAL SYNDROME [None]
  - INTENTIONAL OVERDOSE [None]
  - LOSS OF CONSCIOUSNESS [None]
